FAERS Safety Report 19800397 (Version 2)
Quarter: 2021Q3

REPORT INFORMATION
  Report Type: Report from Study
  Country: TW (occurrence: TW)
  Receive Date: 20210907
  Receipt Date: 20210920
  Transmission Date: 20211014
  Serious: Yes (Death, Hospitalization)
  Sender: FDA-Public Use
  Company Number: TW-EXELIXIS-CABO-21040720

PATIENT
  Age: 62 Year
  Sex: Male

DRUGS (3)
  1. CABOMETYX [Suspect]
     Active Substance: CABOZANTINIB S-MALATE
     Dosage: 40 MG, QOD
     Dates: start: 20210601, end: 20210706
  2. CABOMETYX [Suspect]
     Active Substance: CABOZANTINIB S-MALATE
     Indication: HEPATOCELLULAR CARCINOMA
     Dosage: 40 MG, QD
     Dates: start: 20210103
  3. CABOMETYX [Suspect]
     Active Substance: CABOZANTINIB S-MALATE
     Dosage: 40 MG 1 DAY ON, 2 DAY OFF
     Dates: start: 20210511

REACTIONS (8)
  - Shock [Not Recovered/Not Resolved]
  - Arterial rupture [Not Recovered/Not Resolved]
  - Palmar-plantar erythrodysaesthesia syndrome [Not Recovered/Not Resolved]
  - Death [Fatal]
  - Inappropriate schedule of product administration [Unknown]
  - Oropharyngeal pain [Not Recovered/Not Resolved]
  - Haematemesis [Not Recovered/Not Resolved]
  - Cough [Not Recovered/Not Resolved]

NARRATIVE: CASE EVENT DATE: 20210420
